FAERS Safety Report 10043740 (Version 3)
Quarter: 2014Q2

REPORT INFORMATION
  Report Type: Report from Study
  Country: ES (occurrence: ES)
  Receive Date: 20140328
  Receipt Date: 20140515
  Transmission Date: 20141212
  Serious: Yes (Hospitalization)
  Sender: FDA-Public Use
  Company Number: ES-UCBSA-115029

PATIENT
  Age: 69 Year
  Sex: Male
  Weight: 108.5 kg

DRUGS (7)
  1. CERTOLIZUMAB PEGOL [Suspect]
     Indication: RHEUMATOID ARTHRITIS
     Dosage: ONE SYRINGE EVERY 13 DAYS
     Route: 058
     Dates: start: 20130314, end: 20140319
  2. METFORMIN [Concomitant]
     Indication: DIABETES MELLITUS
     Route: 048
     Dates: start: 2003
  3. ADIRO [Concomitant]
     Route: 048
  4. ATORVASTATIN [Concomitant]
     Indication: DYSLIPIDAEMIA
  5. NAPROXEN [Concomitant]
     Indication: OSTEOARTHRITIS
     Route: 048
     Dates: start: 1997
  6. FOLIC ACID [Concomitant]
     Indication: PROPHYLAXIS
     Dosage: 1 TAB QS
     Route: 048
     Dates: start: 20000221
  7. METHOTREXATE [Concomitant]
     Dosage: UNKNOWN DOSE

REACTIONS (1)
  - Urinary tract infection [Recovered/Resolved]
